FAERS Safety Report 4622238-0 (Version None)
Quarter: 2005Q1

REPORT INFORMATION
  Report Type: 
  Country: None (occurrence: None)
  Receive Date: 20050330
  Receipt Date: 20050318
  Transmission Date: 20050727
  Serious: Yes (Life-Threatening, Hospitalization)
  Sender: FDA-Public Use
  Company Number: US-JNJFOC-20041207327

PATIENT
  Sex: Female
  Weight: 91.63 kg

DRUGS (13)
  1. REMICADE [Suspect]
     Route: 042
  2. REMICADE [Suspect]
     Route: 042
  3. REMICADE [Suspect]
     Indication: RHEUMATOID ARTHRITIS
     Route: 042
  4. LEVOTHYROXINE SODIUM [Concomitant]
  5. FLEXERIL [Concomitant]
  6. CELEXA [Concomitant]
     Indication: RHEUMATOID ARTHRITIS
  7. PLAVIX [Concomitant]
  8. PROPRANOLOL [Concomitant]
  9. UNITHROID [Concomitant]
  10. UNITHROID [Concomitant]
  11. DILTIAZEM [Concomitant]
  12. NITROGLYCERIN [Concomitant]
  13. TOPAMAX [Concomitant]

REACTIONS (3)
  - CARDIAC DISORDER [None]
  - CHEST DISCOMFORT [None]
  - HEADACHE [None]
